FAERS Safety Report 20432517 (Version 1)
Quarter: 2022Q1

REPORT INFORMATION
  Report Type: Spontaneous
  Country: US (occurrence: US)
  Receive Date: 20220204
  Receipt Date: 20220204
  Transmission Date: 20220424
  Serious: Yes (Other)
  Sender: FDA-Public Use
  Company Number: US-TEVA-2022-US-2005099

PATIENT
  Age: 75 Year
  Sex: Female
  Weight: 56.2 kg

DRUGS (1)
  1. CEPHALEXIN [Suspect]
     Active Substance: CEPHALEXIN
     Indication: Localised infection
     Dosage: 1000 MILLIGRAM DAILY; FOR 14 DAYS
     Route: 048
     Dates: start: 20200902

REACTIONS (16)
  - Near death experience [Recovered/Resolved]
  - Pulmonary contusion [Unknown]
  - Pain in extremity [Recovering/Resolving]
  - Sleep disorder [Unknown]
  - Eating disorder [Unknown]
  - Wrist fracture [Unknown]
  - Arthritis [Unknown]
  - Joint instability [Not Recovered/Not Resolved]
  - Fall [Unknown]
  - Injury [Unknown]
  - Head injury [Unknown]
  - Limb discomfort [Unknown]
  - Loss of personal independence in daily activities [Unknown]
  - Gait disturbance [Unknown]
  - Dysstasia [Recovering/Resolving]
  - Impaired driving ability [Unknown]

NARRATIVE: CASE EVENT DATE: 20200101
